FAERS Safety Report 14309291 (Version 7)
Quarter: 2019Q4

REPORT INFORMATION
  Report Type: Report from Study
  Country: PR (occurrence: PR)
  Receive Date: 20171220
  Receipt Date: 20191009
  Transmission Date: 20200122
  Serious: Yes (Hospitalization, Other)
  Sender: FDA-Public Use
  Company Number: PR-JNJFOC-20171214238

PATIENT
  Age: 68 Year
  Sex: Female

DRUGS (9)
  1. TYLENOL [Concomitant]
     Active Substance: ACETAMINOPHEN
  2. HUMALOG [Concomitant]
     Active Substance: INSULIN LISPRO
  3. IMBRUVICA [Suspect]
     Active Substance: IBRUTINIB
     Indication: NON-HODGKIN^S LYMPHOMA
     Route: 048
     Dates: start: 20170127, end: 2017
  4. IMBRUVICA [Suspect]
     Active Substance: IBRUTINIB
     Indication: WALDENSTROM^S MACROGLOBULINAEMIA
     Route: 048
     Dates: start: 20170126, end: 2017
  5. LOSARTAN. [Concomitant]
     Active Substance: LOSARTAN
  6. SALINE                             /00075401/ [Concomitant]
     Active Substance: SODIUM CHLORIDE
  7. GAVISCON                           /00237601/ [Concomitant]
     Active Substance: ALUMINUM HYDROXIDE\MAGNESIUM CARBONATE
  8. IMBRUVICA [Suspect]
     Active Substance: IBRUTINIB
     Route: 048
     Dates: start: 20170206
  9. PRILOSEC [Concomitant]
     Active Substance: OMEPRAZOLE MAGNESIUM

REACTIONS (10)
  - Scratch [Unknown]
  - Skin fissures [Unknown]
  - Pruritus [Unknown]
  - Loss of consciousness [Unknown]
  - Blood glucose fluctuation [Not Recovered/Not Resolved]
  - Haematemesis [Unknown]
  - Bronchitis [Recovering/Resolving]
  - Blood pressure increased [Unknown]
  - Subcutaneous abscess [Unknown]
  - Renal disorder [Unknown]

NARRATIVE: CASE EVENT DATE: 201702
